FAERS Safety Report 25687927 (Version 1)
Quarter: 2025Q3

REPORT INFORMATION
  Report Type: Report from Study
  Country: US (occurrence: US)
  Receive Date: 20250817
  Receipt Date: 20250817
  Transmission Date: 20251020
  Serious: Yes (Death, Hospitalization, Other)
  Sender: ABBVIE
  Company Number: US-ABBVIE-6416869

PATIENT
  Age: 77 Year
  Sex: Male
  Weight: 55.791 kg

DRUGS (2)
  1. LUPRON [Suspect]
     Active Substance: LEUPROLIDE ACETATE
     Indication: Prostate cancer
     Dosage: 22.5 MILLIGRAM
     Route: 030
     Dates: start: 20250324, end: 20250619
  2. XGEVA [Concomitant]
     Active Substance: DENOSUMAB
     Indication: Bone disorder

REACTIONS (2)
  - Sepsis [Fatal]
  - Wound [Not Recovered/Not Resolved]

NARRATIVE: CASE EVENT DATE: 20250101
